FAERS Safety Report 12166031 (Version 1)
Quarter: 2016Q1

REPORT INFORMATION
  Report Type: Spontaneous
  Country: TR (occurrence: TR)
  Receive Date: 20160309
  Receipt Date: 20160309
  Transmission Date: 20160526
  Serious: Yes (Other)
  Sender: FDA-Public Use
  Company Number: TR-MYLANLABS-2016M1010116

PATIENT

DRUGS (1)
  1. MEMANTINE. [Suspect]
     Active Substance: MEMANTINE
     Indication: DEMENTIA ALZHEIMER^S TYPE
     Dosage: 30 MG/DAY FOR A MONTH
     Route: 065

REACTIONS (3)
  - Incorrect dose administered [Recovering/Resolving]
  - Accidental overdose [Recovering/Resolving]
  - Inappropriate antidiuretic hormone secretion [Recovering/Resolving]
